FAERS Safety Report 5521230-1 (Version None)
Quarter: 2007Q4

REPORT INFORMATION
  Report Type: 
  Country: None (occurrence: None)
  Receive Date: 20071119
  Receipt Date: 20071105
  Transmission Date: 20080405
  Serious: Yes (Hospitalization)
  Sender: FDA-Public Use
  Company Number: JP-GENENTECH-250296

PATIENT
  Age: 75 Year
  Sex: Female
  Weight: 59 kg

DRUGS (9)
  1. RANIBIZUMAB [Suspect]
     Indication: MACULAR DEGENERATION
     Dosage: 500 A?G, UNK
     Route: 031
     Dates: start: 20060925
  2. URSO 250 [Concomitant]
     Indication: DRUG USE FOR UNKNOWN INDICATION
  3. ECOLICIN [Concomitant]
     Indication: DRUG USE FOR UNKNOWN INDICATION
  4. ERYTHROMYCIN LACTOBIONATE [Concomitant]
     Indication: DRUG USE FOR UNKNOWN INDICATION
  5. BERIZYM [Concomitant]
     Indication: DRUG USE FOR UNKNOWN INDICATION
  6. LAC B [Concomitant]
     Indication: DRUG USE FOR UNKNOWN INDICATION
  7. LAXOBERON [Concomitant]
     Indication: DRUG USE FOR UNKNOWN INDICATION
  8. NORVASC [Concomitant]
     Indication: DRUG USE FOR UNKNOWN INDICATION
  9. HERBAL PREPARATION [Concomitant]
     Indication: DRUG USE FOR UNKNOWN INDICATION

REACTIONS (1)
  - MALAISE [None]
